FAERS Safety Report 13618775 (Version 2)
Quarter: 2018Q1

REPORT INFORMATION
  Report Type: Report from Study
  Country: US (occurrence: BR)
  Receive Date: 20170606
  Receipt Date: 20180321
  Transmission Date: 20180508
  Serious: Yes (Other)
  Sender: FDA-Public Use
  Company Number: US-SUNOVION-2017SUN002407

PATIENT
  Sex: Female
  Weight: 61 kg

DRUGS (1)
  1. INDACATEROL AND GLYCOPYRROLATE [Suspect]
     Active Substance: GLYCOPYRROLATE\INDACATEROL MALEATE
     Indication: CHRONIC OBSTRUCTIVE PULMONARY DISEASE
     Dosage: 1 DF QD (50 UG GLYCOPYRRONIUM BROMIDE, 110 UG INDACATEROL); INHALATION
     Route: 055
     Dates: start: 20170326

REACTIONS (5)
  - Asphyxia [Unknown]
  - Cough [Unknown]
  - Drug ineffective [Unknown]
  - Choking [Unknown]
  - Malaise [Unknown]
